FAERS Safety Report 11368989 (Version 1)
Quarter: 2015Q3

REPORT INFORMATION
  Report Type: Spontaneous
  Country: US (occurrence: None)
  Receive Date: 20150811
  Receipt Date: 20150811
  Transmission Date: 20151125
  Serious: Yes (Hospitalization)
  Sender: FDA-Public Use
  Company Number: None

PATIENT
  Age: 66 Year
  Sex: Male
  Weight: 101.15 kg

DRUGS (6)
  1. RITUXIMAB [Suspect]
     Active Substance: RITUXIMAB
     Indication: CHRONIC LYMPHOCYTIC LEUKAEMIA
     Dates: start: 20150311, end: 20150311
  2. FAMOTIDINE. [Concomitant]
     Active Substance: FAMOTIDINE
  3. BENDAMUSTINE [Concomitant]
     Active Substance: BENDAMUSTINE
  4. ONDANSETRON [Concomitant]
     Active Substance: ONDANSETRON
  5. OMEPRAZOLE. [Concomitant]
     Active Substance: OMEPRAZOLE
  6. DEXAMETHASONE. [Concomitant]
     Active Substance: DEXAMETHASONE

REACTIONS (11)
  - Dyspnoea [None]
  - Hypertension [None]
  - Cough [None]
  - Hyperhidrosis [None]
  - Hypotension [None]
  - Nausea [None]
  - Diarrhoea [None]
  - Respiratory distress [None]
  - Chills [None]
  - Vomiting [None]
  - Wheezing [None]

NARRATIVE: CASE EVENT DATE: 20150311
